FAERS Safety Report 20866410 (Version 3)
Quarter: 2022Q3

REPORT INFORMATION
  Report Type: Spontaneous
  Country: US (occurrence: US)
  Receive Date: 20220524
  Receipt Date: 20220718
  Transmission Date: 20221027
  Serious: No
  Sender: FDA-Public Use
  Company Number: US-PFIZER INC-202200735140

PATIENT
  Age: 72 Year
  Sex: Female

DRUGS (1)
  1. ESTRING [Suspect]
     Active Substance: ESTRADIOL
     Indication: Menopause
     Dosage: 2 MG, CYCLIC (2MG VAGINAL RING-1 RING EVERY 3 MONTHS)
     Route: 067

REACTIONS (2)
  - Drug ineffective [Unknown]
  - Intentional device use issue [Not Recovered/Not Resolved]

NARRATIVE: CASE EVENT DATE: 20220401
